FAERS Safety Report 12653790 (Version 1)
Quarter: 2016Q3

REPORT INFORMATION
  Report Type: Spontaneous
  Country: US (occurrence: US)
  Receive Date: 20160816
  Receipt Date: 20160816
  Transmission Date: 20161109
  Serious: No
  Sender: FDA-Public Use
  Company Number: US-ASTRAZENECA-2016SE85597

PATIENT
  Age: 25619 Day
  Sex: Female
  Weight: 68 kg

DRUGS (2)
  1. LOT OF MEDICATION [Concomitant]
  2. MOVANTIK [Suspect]
     Active Substance: NALOXEGOL OXALATE
     Indication: CONSTIPATION
     Route: 048
     Dates: start: 20160802

REACTIONS (5)
  - Product use issue [Unknown]
  - Abdominal pain upper [Recovered/Resolved]
  - Bowel movement irregularity [Unknown]
  - Migraine [Recovered/Resolved]
  - Off label use [Unknown]

NARRATIVE: CASE EVENT DATE: 20160802
